FAERS Safety Report 23055084 (Version 1)
Quarter: 2023Q4

REPORT INFORMATION
  Report Type: Spontaneous
  Country: US (occurrence: None)
  Receive Date: 20231010
  Receipt Date: 20231010
  Transmission Date: 20240110
  Serious: Yes (Hospitalization)
  Sender: FDA-Public Use
  Company Number: None

PATIENT
  Age: 61 Year
  Sex: Female
  Weight: 52.9 kg

DRUGS (1)
  1. CYTARABINE [Suspect]
     Active Substance: CYTARABINE
     Dates: end: 20191206

REACTIONS (4)
  - Device occlusion [None]
  - Catheter site oedema [None]
  - Catheter site erythema [None]
  - Catheter site pain [None]

NARRATIVE: CASE EVENT DATE: 20191213
